FAERS Safety Report 22110937 (Version 1)
Quarter: 2023Q1

REPORT INFORMATION
  Report Type: Spontaneous
  Country: US (occurrence: US)
  Receive Date: 20230317
  Receipt Date: 20230317
  Transmission Date: 20230417
  Serious: No
  Sender: FDA-Public Use
  Company Number: US-PFIZER INC-202300111926

PATIENT
  Age: 65 Year
  Sex: Female
  Weight: 99.79 kg

DRUGS (3)
  1. IBRANCE [Suspect]
     Active Substance: PALBOCICLIB
     Indication: Breast cancer
     Dosage: UNK
  2. SEMGLEE [INSULIN GLARGINE] [Concomitant]
     Indication: Diabetes mellitus
     Dosage: 50 UNITS, 1X/DAY (AT NIGHT)
  3. INSULIN ASPART Flex Pen [Concomitant]
     Indication: Diabetes mellitus
     Dosage: UNK (BEFORE MEAL)

REACTIONS (2)
  - Nausea [Unknown]
  - Dizziness [Unknown]
